FAERS Safety Report 21356949 (Version 1)
Quarter: 2022Q3

REPORT INFORMATION
  Report Type: Spontaneous
  Country: JP (occurrence: JP)
  Receive Date: 20220921
  Receipt Date: 20220921
  Transmission Date: 20221027
  Serious: Yes (Hospitalization, Other)
  Sender: FDA-Public Use
  Company Number: None

PATIENT
  Age: 37 Year
  Sex: Female

DRUGS (10)
  1. VANCOMYCIN [Interacting]
     Active Substance: VANCOMYCIN
     Indication: Cellulitis
     Dosage: 2 GRAM, PER DAY
     Route: 065
     Dates: start: 2021, end: 2021
  2. VANCOMYCIN [Interacting]
     Active Substance: VANCOMYCIN
     Indication: Staphylococcal infection
     Dosage: 3 GRAM, PER DAY
     Route: 065
     Dates: start: 2021, end: 2021
  3. VANCOMYCIN [Interacting]
     Active Substance: VANCOMYCIN
     Dosage: 1.5 GRAM, PER DAY
     Route: 065
     Dates: start: 2021
  4. VANCOMYCIN [Interacting]
     Active Substance: VANCOMYCIN
     Dosage: 2 GRAM, PER DAY (INCREASED)
     Route: 065
     Dates: start: 2021
  5. PIPERACILLIN SODIUM\TAZOBACTAM SODIUM [Interacting]
     Active Substance: PIPERACILLIN SODIUM\TAZOBACTAM SODIUM
     Indication: Staphylococcal infection
     Dosage: 18 GRAM, PER DAY
     Route: 065
     Dates: start: 2021, end: 2021
  6. PIPERACILLIN SODIUM\TAZOBACTAM SODIUM [Interacting]
     Active Substance: PIPERACILLIN SODIUM\TAZOBACTAM SODIUM
     Indication: Cellulitis
  7. ACTINOMYCIN D [Concomitant]
     Active Substance: DACTINOMYCIN
     Indication: Gastrointestinal carcinoma
     Dosage: 0.5 MILLIGRAM/ BODY (EVERY 3WEEKS FROM DAY 1 TO 5)
     Route: 065
     Dates: start: 2021
  8. METHOTREXATE [Concomitant]
     Active Substance: METHOTREXATE
     Indication: Gastrointestinal carcinoma
     Dosage: 450 MILLIGRAM/ BODY (EVERY 3WEEKS FROM DAY 1 TO 5)
     Route: 065
     Dates: start: 2021
  9. ETOPOSIDE [Concomitant]
     Active Substance: ETOPOSIDE
     Indication: Gastrointestinal carcinoma
     Dosage: 100 MILLIGRAM/ BODY (EVERY 3WEEKS FROM DAY 1 TO 5)
     Route: 065
     Dates: start: 2021
  10. AMBROXOL;CARBOCISTEINE [Concomitant]
     Indication: Product used for unknown indication
     Dosage: UNK
     Route: 065

REACTIONS (4)
  - Drug interaction [Recovered/Resolved]
  - Acute kidney injury [Recovered/Resolved]
  - Rash [Recovered/Resolved]
  - Toxicity to various agents [Recovered/Resolved]

NARRATIVE: CASE EVENT DATE: 20210101
